FAERS Safety Report 6931676-2 (Version None)
Quarter: 2010Q3

REPORT INFORMATION
  Report Type: 
  Country: None (occurrence: None)
  Receive Date: 20100812
  Receipt Date: 20090623
  Transmission Date: 20110219
  Serious: No
  Sender: FDA-Public Use
  Company Number: 2009-00159

PATIENT
  Age: 45 Year
  Sex: Female
  Weight: 58.9676 kg

DRUGS (3)
  1. ZICAM COLD REMEDY GEL SWABS [Suspect]
     Dosage: QID X A FEW DAYS
     Dates: start: 20070101
  2. PAXIL [Concomitant]
  3. SYMBICORT [Concomitant]

REACTIONS (2)
  - ANOSMIA [None]
  - DYSGEUSIA [None]
